FAERS Safety Report 5054300-5 (Version None)
Quarter: 2006Q3

REPORT INFORMATION
  Report Type: 
  Country: None (occurrence: None)
  Receive Date: 20060713
  Receipt Date: 20060703
  Transmission Date: 20061208
  Serious: Yes (Hospitalization)
  Sender: FDA-Public Use
  Company Number: 2006RL000182

PATIENT
  Age: 80 Year
  Sex: Female

DRUGS (2)
  1. OMACOR [Suspect]
     Dosage: 1000 MG;QD;PO
     Route: 048
  2. ACETYLSALICYLIC ACID SRT [Suspect]
     Dosage: 100 MG;QD;PO
     Route: 048

REACTIONS (1)
  - HAEMORRHAGE [None]
